FAERS Safety Report 6667893-9 (Version None)
Quarter: 2010Q2

REPORT INFORMATION
  Report Type: 
  Country: None (occurrence: None)
  Receive Date: 20100405
  Receipt Date: 20100326
  Transmission Date: 20101027
  Serious: Yes (Hospitalization, Other)
  Sender: FDA-Public Use
  Company Number: US-PFIZER INC-2009185100

PATIENT
  Sex: Male
  Weight: 99.773 kg

DRUGS (9)
  1. LIPITOR [Suspect]
     Indication: BLOOD CHOLESTEROL INCREASED
     Dosage: UNK, 1X/DAY
     Route: 048
     Dates: start: 20040101, end: 20090101
  2. WARFARIN [Suspect]
     Dosage: UNK
     Dates: end: 20060101
  3. DOXAZOSIN MESILATE [Concomitant]
     Dosage: UNK
  4. DIOVAN HCT [Concomitant]
     Dosage: UNK
  5. PRAVASTATIN [Concomitant]
     Dosage: UNK
  6. OMEPRAZOLE [Concomitant]
     Dosage: UNK
  7. LEVOTHYROXINE SODIUM [Concomitant]
     Dosage: UNK
  8. AMLODIPINE BESILATE [Concomitant]
     Dosage: UNK
  9. MULTI-VITAMINS [Concomitant]
     Dosage: UNK

REACTIONS (11)
  - ARTHRALGIA [None]
  - ARTHROPATHY [None]
  - BLOOD CHOLESTEROL INCREASED [None]
  - GOUTY ARTHRITIS [None]
  - HAEMORRHAGE [None]
  - HEARING IMPAIRED [None]
  - MUSCLE ATROPHY [None]
  - MUSCULAR WEAKNESS [None]
  - RENAL FAILURE [None]
  - RESUSCITATION [None]
  - SCIATICA [None]
